FAERS Safety Report 18081316 (Version 1)
Quarter: 2020Q3

REPORT INFORMATION
  Report Type: Spontaneous
  Country: US (occurrence: US)
  Receive Date: 20200728
  Receipt Date: 20200728
  Transmission Date: 20201103
  Serious: Yes (Hospitalization)
  Sender: FDA-Public Use
  Company Number: US-ASTRAZENECA-2020SE92487

PATIENT
  Sex: Female

DRUGS (1)
  1. SYMBICORT [Suspect]
     Active Substance: BUDESONIDE\FORMOTEROL FUMARATE DIHYDRATE
     Dosage: 160 UG, UNKNOWN UNKNOWN
     Route: 055

REACTIONS (5)
  - Anxiety [Unknown]
  - Product dose omission issue [Unknown]
  - Dyspnoea [Unknown]
  - Panic attack [Unknown]
  - Depressed mood [Unknown]

NARRATIVE: CASE EVENT DATE: 20200720
